FAERS Safety Report 6073463-6 (Version None)
Quarter: 2009Q1

REPORT INFORMATION
  Report Type: 
  Country: None (occurrence: None)
  Receive Date: 20090211
  Receipt Date: 20090204
  Transmission Date: 20090719
  Serious: Yes (Other)
  Sender: FDA-Public Use
  Company Number: JP-ABBOTT-08P-087-0487115-00

PATIENT
  Age: 72 Year
  Sex: Female

DRUGS (4)
  1. CLARITHROMYCIN [Suspect]
     Indication: HELICOBACTER INFECTION
     Route: 048
  2. TAKEPRON [Suspect]
     Indication: HELICOBACTER INFECTION
     Route: 048
  3. SAWACILLIN [Suspect]
     Indication: HELICOBACTER INFECTION
     Route: 048
  4. GLIBENCLAMIDE [Concomitant]
     Indication: TYPE 2 DIABETES MELLITUS
     Route: 048

REACTIONS (3)
  - DIZZINESS [None]
  - HYPERHIDROSIS [None]
  - HYPOGLYCAEMIC COMA [None]
